FAERS Safety Report 5708474-0 (Version None)
Quarter: 2008Q2

REPORT INFORMATION
  Report Type: 
  Country: None (occurrence: None)
  Receive Date: 20080417
  Receipt Date: 20080411
  Transmission Date: 20081010
  Serious: Yes (Hospitalization, Other)
  Sender: FDA-Public Use
  Company Number: DE-JNJFOC-20080300081

PATIENT
  Sex: Female
  Weight: 53.5 kg

DRUGS (4)
  1. CONCERTA [Suspect]
     Indication: ATTENTION DEFICIT/HYPERACTIVITY DISORDER
     Route: 048
  2. METHYLPHENIDATE HCL [Suspect]
     Indication: ATTENTION DEFICIT/HYPERACTIVITY DISORDER
     Route: 048
  3. ARCOXIA [Suspect]
     Indication: ANKYLOSING SPONDYLITIS
     Route: 048
  4. TELFAST [Concomitant]
     Indication: ASTHMA
     Route: 048

REACTIONS (2)
  - CAROTID ARTERY DISSECTION [None]
  - CEREBRAL INFARCTION [None]
